FAERS Safety Report 5808394-7 (Version None)
Quarter: 2008Q3

REPORT INFORMATION
  Report Type: 
  Country: None (occurrence: None)
  Receive Date: 20080714
  Receipt Date: 20080701
  Transmission Date: 20090109
  Serious: Yes (Hospitalization)
  Sender: FDA-Public Use
  Company Number: PHNU2008DE01864

PATIENT
  Sex: Female
  Weight: 65 kg

DRUGS (6)
  1. ZOLEDRONIC ACID [Suspect]
     Indication: OSTEOPOROSIS
     Dosage: 5 MG
     Route: 042
     Dates: start: 20071220, end: 20071220
  2. NOLOTIL [Suspect]
     Route: 048
  3. HERBAL PREPARATION [Suspect]
  4. HOMEOPATHIC PREPARATIONS [Suspect]
  5. PREDNISOLONE [Concomitant]
     Dosage: 60 MG
  6. DERMATOP [Concomitant]

REACTIONS (16)
  - BLISTER [None]
  - CHILLS [None]
  - CONJUNCTIVAL HYPERAEMIA [None]
  - CONJUNCTIVITIS [None]
  - ERYTHEMA [None]
  - ERYTHRODERMIC PSORIASIS [None]
  - FATIGUE [None]
  - MACULOPATHY [None]
  - OEDEMA PERIPHERAL [None]
  - PRURITUS [None]
  - PSEUDOPHAKIA [None]
  - PYREXIA [None]
  - RASH GENERALISED [None]
  - SKIN REACTION [None]
  - SURGERY [None]
  - TOXIC EPIDERMAL NECROLYSIS [None]
